FAERS Safety Report 18209411 (Version 3)
Quarter: 2020Q4

REPORT INFORMATION
  Report Type: Spontaneous
  Country: IT (occurrence: IT)
  Receive Date: 20200828
  Receipt Date: 20201012
  Transmission Date: 20210113
  Serious: Yes (Life-Threatening, Other)
  Sender: FDA-Public Use
  Company Number: IT-PFIZER INC-2020331135

PATIENT
  Age: 50 Year
  Sex: Female
  Weight: 75 kg

DRUGS (2)
  1. CYCLOPHOSPHAMIDE. [Suspect]
     Active Substance: CYCLOPHOSPHAMIDE
     Indication: BREAST CANCER FEMALE
     Dosage: 1130 MG, CYCLIC
     Route: 042
     Dates: start: 20200805, end: 20200805
  2. DOCETAXEL. [Suspect]
     Active Substance: DOCETAXEL
     Indication: BREAST CANCER FEMALE
     Dosage: 140 MG, CYCLIC
     Route: 042
     Dates: start: 20200805, end: 20200805

REACTIONS (6)
  - Neutropenic colitis [Not Recovered/Not Resolved]
  - Hypotension [Unknown]
  - White blood cell count decreased [Unknown]
  - International normalised ratio increased [Unknown]
  - Metabolic acidosis [Unknown]
  - Blood creatinine increased [Unknown]

NARRATIVE: CASE EVENT DATE: 20200812
